FAERS Safety Report 5349654-6 (Version None)
Quarter: 2007Q2

REPORT INFORMATION
  Report Type: 
  Country: None (occurrence: None)
  Receive Date: 20070607
  Receipt Date: 20070530
  Transmission Date: 20071010
  Serious: Yes (Hospitalization)
  Sender: FDA-Public Use
  Company Number: FR-ELI_LILLY_AND_COMPANY-FR200611001918

PATIENT
  Age: 55 Year
  Sex: Female

DRUGS (8)
  1. FORTEO [Suspect]
     Indication: OSTEOPOROSIS
     Dosage: 20 UG, DAILY (1/D)
     Route: 058
     Dates: start: 20060619
  2. OXYGEN [Concomitant]
     Indication: DYSPNOEA
     Route: 055
     Dates: start: 20061001
  3. HUMALOG MIX 25 [Concomitant]
     Indication: INSULIN-REQUIRING TYPE II DIABETES MELLITUS
     Dosage: 28 IU, EACH MORNING
     Route: 058
  4. AZATHIOPRINE SODIUM [Concomitant]
     Indication: POLYMYOSITIS
     Dosage: 150 MG, EACH MORNING
     Route: 048
     Dates: start: 20000101
  5. CORTANCYL [Concomitant]
     Indication: POLYMYOSITIS
     Dosage: 40 MG, EACH MORNING
     Route: 048
     Dates: start: 20000101
  6. NOVONORM [Concomitant]
     Dosage: 0.5 MG, EACH EVENING
     Route: 048
  7. KARDEGIC [Concomitant]
     Dosage: 160 MG, EACH MORNING
  8. CARDENSIEL [Concomitant]
     Dosage: 5 MG, DAILY (1/D)

REACTIONS (2)
  - LUNG INFECTION [None]
  - POLYMYOSITIS [None]
